FAERS Safety Report 6848305-9 (Version None)
Quarter: 2010Q3

REPORT INFORMATION
  Report Type: 
  Country: None (occurrence: None)
  Receive Date: 20100716
  Receipt Date: 20100706
  Transmission Date: 20110219
  Serious: Yes (Hospitalization)
  Sender: FDA-Public Use
  Company Number: US-JNJFOC-20100607818

PATIENT
  Age: 13 Month
  Sex: Female
  Weight: 9.07 kg

DRUGS (13)
  1. CONCENTRATED MOTRIN INFANTS DROPS [Suspect]
     Indication: PYREXIA
     Route: 048
  2. CONCENTRATED MOTRIN INFANTS DROPS [Suspect]
     Route: 048
  3. CONCENTRATED MOTRIN INFANTS DROPS [Suspect]
     Indication: EAR INFECTION
     Route: 048
  4. CONCENTRATED MOTRIN INFANTS DROPS [Suspect]
     Route: 048
  5. CONCENTRATED MOTRIN INFANTS DROPS [Suspect]
     Indication: TEETHING
     Route: 048
  6. CONCENTRATED MOTRIN INFANTS DROPS [Suspect]
     Route: 048
  7. CONCENTRATED TYLENOL INFANT DROPS [Suspect]
     Indication: PYREXIA
     Route: 048
  8. CONCENTRATED TYLENOL INFANT DROPS [Suspect]
     Route: 048
  9. CONCENTRATED TYLENOL INFANT DROPS [Suspect]
     Indication: EAR INFECTION
     Route: 048
  10. CONCENTRATED TYLENOL INFANT DROPS [Suspect]
     Route: 048
  11. CONCENTRATED TYLENOL INFANT DROPS [Suspect]
     Indication: TEETHING
     Route: 048
  12. CONCENTRATED TYLENOL INFANT DROPS [Suspect]
     Route: 048
  13. ANTIBIOTIC [Concomitant]
     Indication: EAR INFECTION
     Route: 065

REACTIONS (4)
  - EPILEPSY [None]
  - NUCLEAR MAGNETIC RESONANCE IMAGING BRAIN ABNORMAL [None]
  - PRODUCT QUALITY ISSUE [None]
  - RESPIRATORY ARREST [None]
